FAERS Safety Report 9758654 (Version 1)
Quarter: 2013Q4

REPORT INFORMATION
  Report Type: Spontaneous
  Country: US (occurrence: None)
  Receive Date: 20131216
  Receipt Date: 20131216
  Transmission Date: 20140711
  Serious: Yes (Hospitalization, Other)
  Sender: FDA-Public Use
  Company Number: RB-51517-2013

PATIENT
  Age: 20 Year
  Sex: Female

DRUGS (2)
  1. SUBOXONE [Suspect]
     Indication: DRUG DEPENDENCE
     Dosage: (DOSING DETAILS UNKNOWN, BOUGHT SMALL DOSES OFF THE STREET UNKNOWN
  2. SUBOXONE [Suspect]
     Indication: DRUG DEPENDENCE
     Dosage: (4 MG, SUBOXONE FILM SUBLINGUAL), (16 MG, SUBOXONE FILM SUBLINGUAL), (8 MG, SUBOXONE FILM SUBLINGUAL

REACTIONS (2)
  - Substance abuse [None]
  - Dysuria [None]
